FAERS Safety Report 10063509 (Version 2)
Quarter: 2014Q2

REPORT INFORMATION
  Report Type: Spontaneous
  Country: MX (occurrence: MX)
  Receive Date: 20140407
  Receipt Date: 20140407
  Transmission Date: 20141212
  Serious: Yes (Death)
  Sender: FDA-Public Use
  Company Number: MX-ELI_LILLY_AND_COMPANY-MX201401006581

PATIENT
  Age: 87 Year
  Sex: Female

DRUGS (1)
  1. COMPETACT [Suspect]
     Indication: PRODUCT USED FOR UNKNOWN INDICATION
     Dosage: UNK
     Route: 065
     Dates: start: 201104

REACTIONS (3)
  - Pneumonia [Fatal]
  - Cardiac failure [Fatal]
  - Septic shock [Fatal]
